FAERS Safety Report 5262976-2 (Version None)
Quarter: 2007Q1

REPORT INFORMATION
  Report Type: 
  Country: None (occurrence: None)
  Receive Date: 20070312
  Receipt Date: 20070302
  Transmission Date: 20070707
  Serious: Yes (Hospitalization)
  Sender: FDA-Public Use
  Company Number: HQWYE534102MAR07

PATIENT
  Age: 66 Year
  Sex: Male

DRUGS (13)
  1. CORDARONE [Suspect]
     Indication: ARRHYTHMIA
     Route: 042
     Dates: start: 20070106, end: 20070122
  2. CORDARONE [Suspect]
     Indication: ATRIAL FIBRILLATION
  3. LEVOTHYROXINE SODIUM [Concomitant]
     Route: 048
     Dates: start: 19970101
  4. ZOLPIDEM TARTRATE [Concomitant]
     Dosage: UNSPECIFIED DOSE, AS NEEDED
     Route: 048
  5. LANSOPRAZOLE [Concomitant]
     Route: 048
     Dates: start: 19930101
  6. ACTRAPID HUMAN [Concomitant]
     Dosage: UNKNOWN
     Route: 058
  7. MEFOXIN [Concomitant]
     Dosage: UNKNOWN
     Route: 042
  8. KETOPROFEN [Concomitant]
     Dosage: UNKNOWN
     Route: 065
  9. MOPRAL [Concomitant]
     Dosage: UNKNOWN
     Route: 065
  10. PERFALGAN [Concomitant]
     Dosage: UNKNOWN
     Route: 065
  11. LOVENOX [Concomitant]
     Dosage: UNKNOWN
     Route: 058
  12. TEMGESIC [Concomitant]
     Route: 048
     Dates: start: 19950101
  13. ACETAMINOPHEN [Concomitant]
     Dosage: UNSPECIFIED DOSE, AS NEEDED
     Route: 065

REACTIONS (3)
  - ACUTE RESPIRATORY DISTRESS SYNDROME [None]
  - HAEMOPTYSIS [None]
  - LUNG DISORDER [None]
